FAERS Safety Report 9007215 (Version 2)
Quarter: 2013Q1

REPORT INFORMATION
  Report Type: Spontaneous
  Country: US (occurrence: US)
  Receive Date: 20130110
  Receipt Date: 20130204
  Transmission Date: 20140127
  Serious: Yes (Other)
  Sender: FDA-Public Use
  Company Number: US-ASTRAZENECA-2013SE00857

PATIENT
  Age: 83 Year
  Sex: Female
  Weight: 64.9 kg

DRUGS (5)
  1. CRESTOR [Suspect]
     Indication: HYPERTENSION
     Route: 048
     Dates: start: 20080401
  2. LISINOPRIL [Suspect]
     Route: 048
  3. LISINOPRIL HCT [Suspect]
     Indication: HYPERTENSION
     Dosage: 20/25, EVERYDAY
     Route: 048
     Dates: start: 20101228
  4. METFORMIN [Concomitant]
     Indication: DIABETES MELLITUS
     Route: 048
  5. LEVEMIR [Concomitant]
     Indication: DIABETES MELLITUS
     Route: 058
     Dates: start: 2009

REACTIONS (4)
  - Neoplasm malignant [Unknown]
  - Breast cancer metastatic [Recovered/Resolved with Sequelae]
  - Metastases to bone [Recovered/Resolved with Sequelae]
  - Bone pain [Unknown]
